FAERS Safety Report 10265215 (Version 1)
Quarter: 2014Q2

REPORT INFORMATION
  Report Type: Spontaneous
  Country: IN (occurrence: IN)
  Receive Date: 20140627
  Receipt Date: 20140627
  Transmission Date: 20141212
  Serious: Yes (Other)
  Sender: FDA-Public Use
  Company Number: IN-WATSON-2014-13441

PATIENT
  Age: 40 Year
  Sex: Male

DRUGS (8)
  1. PREGABALIN (UNKNOWN) [Suspect]
     Indication: POST HERPETIC NEURALGIA
     Dosage: 150 MG, BID
     Route: 065
  2. PREGABALIN (UNKNOWN) [Suspect]
     Dosage: 75 MG, BID
     Route: 065
  3. TRAMADOL (UNKNOWN) [Suspect]
     Indication: POST HERPETIC NEURALGIA
     Dosage: 50 MG AS AND WHEN REQUIRED
     Route: 030
  4. ETORICOXIB [Suspect]
     Indication: BURNING SENSATION
     Dosage: 120 MG, DAILY
     Route: 065
  5. ACYCLOVIR                          /00587301/ [Concomitant]
     Indication: POST HERPETIC NEURALGIA
     Dosage: UNK
     Route: 048
  6. ACYCLOVIR                          /00587301/ [Concomitant]
     Dosage: UNK
     Route: 061
  7. PARACETAMOL [Concomitant]
     Indication: POST HERPETIC NEURALGIA
     Dosage: 1 G, TID
     Route: 048
  8. PARACETAMOL [Concomitant]
     Dosage: WHENEVER NECESSARY
     Route: 048

REACTIONS (4)
  - Angioedema [Recovered/Resolved]
  - Dermatitis exfoliative [Recovered/Resolved]
  - Eosinophilia [Recovered/Resolved]
  - Transaminases increased [Recovered/Resolved]
